FAERS Safety Report 4696563-1 (Version None)
Quarter: 2005Q2

REPORT INFORMATION
  Report Type: 
  Country: None (occurrence: None)
  Receive Date: 20050620
  Receipt Date: 20050610
  Transmission Date: 20051028
  Serious: Yes (Hospitalization)
  Sender: FDA-Public Use
  Company Number: 2005US-00549

PATIENT
  Age: 17 Year
  Sex: Female

DRUGS (1)
  1. IBUPROFEN [Suspect]

REACTIONS (4)
  - ACQUIRED DIAPHRAGMATIC EVENTRATION [None]
  - CHEST X-RAY ABNORMAL [None]
  - DUODENAL ULCER PERFORATION [None]
  - OVERDOSE [None]
